FAERS Safety Report 11106294 (Version 22)
Quarter: 2019Q2

REPORT INFORMATION
  Report Type: Report from Study
  Country: CA (occurrence: CA)
  Receive Date: 20150512
  Receipt Date: 20190529
  Transmission Date: 20190711
  Serious: Yes (Hospitalization, Other)
  Sender: FDA-Public Use
  Company Number: CA-ROCHE-1547668

PATIENT
  Age: 34 Year
  Sex: Female
  Weight: 82 kg

DRUGS (14)
  1. ACTEMRA [Suspect]
     Active Substance: TOCILIZUMAB
     Indication: RHEUMATOID ARTHRITIS
     Route: 042
     Dates: start: 20150715, end: 20150715
  2. ACTEMRA [Suspect]
     Active Substance: TOCILIZUMAB
     Route: 042
     Dates: start: 20161018
  3. PREDNISOLONE. [Concomitant]
     Active Substance: PREDNISOLONE
     Dosage: GTTES OU
     Route: 065
  4. ACTEMRA [Suspect]
     Active Substance: TOCILIZUMAB
     Indication: RHEUMATOID ARTHRITIS
     Dosage: FREQUENCY: EVERY OTHER WEEK
     Route: 058
     Dates: start: 20150302, end: 20150413
  5. DEXILANT [Concomitant]
     Active Substance: DEXLANSOPRAZOLE
     Route: 065
  6. FOLIC ACID. [Concomitant]
     Active Substance: FOLIC ACID
     Route: 065
  7. ACTEMRA [Suspect]
     Active Substance: TOCILIZUMAB
     Route: 042
     Dates: start: 20160129
  8. MAXIDEX [Concomitant]
     Active Substance: DEXAMETHASONE
     Dosage: OINTMENT AT NIGHT
     Route: 065
  9. CELEBREX [Suspect]
     Active Substance: CELECOXIB
     Indication: PRODUCT USED FOR UNKNOWN INDICATION
     Route: 048
  10. TYLENOL [Concomitant]
     Active Substance: ACETAMINOPHEN
     Route: 065
  11. METHOTREXATE. [Suspect]
     Active Substance: METHOTREXATE
     Indication: PRODUCT USED FOR UNKNOWN INDICATION
     Route: 058
     Dates: end: 201504
  12. ACTEMRA [Suspect]
     Active Substance: TOCILIZUMAB
     Dosage: 390 MG/100  ML
     Route: 042
     Dates: start: 20190226
  13. ACTEMRA [Suspect]
     Active Substance: TOCILIZUMAB
     Route: 042
     Dates: start: 20150930
  14. ADALAT [Concomitant]
     Active Substance: NIFEDIPINE
     Indication: HYPERTENSION
     Route: 065

REACTIONS (37)
  - Hypertension [Unknown]
  - Blood pressure increased [Unknown]
  - Nervousness [Unknown]
  - Diarrhoea [Not Recovered/Not Resolved]
  - Pruritus [Not Recovered/Not Resolved]
  - Sinusitis noninfective [Not Recovered/Not Resolved]
  - Crohn^s disease [Unknown]
  - Pain [Not Recovered/Not Resolved]
  - Diarrhoea [Recovered/Resolved]
  - Injection site swelling [Unknown]
  - Conjunctivitis bacterial [Not Recovered/Not Resolved]
  - Blood pressure fluctuation [Unknown]
  - Therapeutic product effect incomplete [Unknown]
  - Infection [Unknown]
  - Ovarian cyst [Unknown]
  - Sinusitis bacterial [Not Recovered/Not Resolved]
  - Uveitis [Recovering/Resolving]
  - Rheumatoid arthritis [Unknown]
  - Vomiting [Unknown]
  - Injection site extravasation [Unknown]
  - White coat hypertension [Unknown]
  - Rheumatoid arthritis [Unknown]
  - Drug ineffective [Unknown]
  - Gastric disorder [Unknown]
  - Heart rate decreased [Unknown]
  - Injection site haemorrhage [Unknown]
  - Rash [Unknown]
  - Nausea [Not Recovered/Not Resolved]
  - Blood pressure increased [Unknown]
  - Rash [Recovered/Resolved]
  - Fatigue [Unknown]
  - Insomnia [Unknown]
  - Back pain [Unknown]
  - Kidney infection [Unknown]
  - Abdominal pain upper [Not Recovered/Not Resolved]
  - Weight increased [Unknown]
  - Rash generalised [Unknown]

NARRATIVE: CASE EVENT DATE: 20150302
